FAERS Safety Report 17114216 (Version 1)
Quarter: 2019Q4

REPORT INFORMATION
  Report Type: Spontaneous
  Country: FR (occurrence: FR)
  Receive Date: 20191205
  Receipt Date: 20191205
  Transmission Date: 20200122
  Serious: Yes (Other)
  Sender: FDA-Public Use
  Company Number: FR-ALKEM LABORATORIES LIMITED-FR-ALKEM-2019-10448

PATIENT
  Sex: Female

DRUGS (4)
  1. LIDOCAINE. [Suspect]
     Active Substance: LIDOCAINE
     Indication: EPIDURAL ANAESTHESIA
     Dosage: 17 ML OF LIDOCAINE 2% ADRENALINE
     Route: 008
  2. LEVOBUPIVACAINE [Suspect]
     Active Substance: LEVOBUPIVACAINE
     Indication: EPIDURAL ANALGESIA
     Dosage: UNK
     Route: 008
  3. SUFENTANIL [Suspect]
     Active Substance: SUFENTANIL
     Indication: EPIDURAL ANALGESIA
     Dosage: 0.5 MICROGRAM/ML
     Route: 008
  4. CATAPRESSAN [Suspect]
     Active Substance: CLONIDINE
     Indication: EPIDURAL ANALGESIA
     Dosage: 1 MICROGRAM/ML
     Route: 008

REACTIONS (9)
  - Tremor [Unknown]
  - Nausea [Unknown]
  - Hypotension [Recovered/Resolved]
  - Exposure during pregnancy [Unknown]
  - Somnolence [Unknown]
  - Nystagmus [Recovered/Resolved]
  - Heart rate decreased [Recovered/Resolved]
  - Coma [Recovered/Resolved]
  - Local anaesthetic systemic toxicity [Unknown]
